FAERS Safety Report 24997262 (Version 1)
Quarter: 2025Q1

REPORT INFORMATION
  Report Type: Report from Study
  Country: CO (occurrence: CO)
  Receive Date: 20250221
  Receipt Date: 20250221
  Transmission Date: 20250409
  Serious: Yes (Death, Hospitalization)
  Sender: ABBVIE
  Company Number: CO-ABBVIE-6143494

PATIENT
  Sex: Female

DRUGS (1)
  1. VENCLEXTA [Suspect]
     Active Substance: VENETOCLAX
     Indication: Acute myeloid leukaemia
     Dosage: 100 MG
     Route: 048
     Dates: start: 20241101, end: 20250115

REACTIONS (2)
  - Proctitis ulcerative [Fatal]
  - Haemorrhoids [Unknown]
